FAERS Safety Report 18784945 (Version 2)
Quarter: 2021Q1

REPORT INFORMATION
  Report Type: Report from Study
  Country: CO (occurrence: CO)
  Receive Date: 20210125
  Receipt Date: 20210309
  Transmission Date: 20210419
  Serious: Yes (Other)
  Sender: FDA-Public Use
  Company Number: CO-TAKEDA-2021TUS004638

PATIENT
  Age: 53 Year
  Sex: Male
  Weight: 112 kg

DRUGS (2)
  1. ISONIAZIDE [Concomitant]
     Active Substance: ISONIAZID
     Dosage: UNK
  2. VEDOLIZUMAB [Suspect]
     Active Substance: VEDOLIZUMAB
     Indication: COLITIS ULCERATIVE
     Dosage: 300 MILLIGRAM
     Route: 042
     Dates: start: 20210105

REACTIONS (3)
  - Haematochezia [Not Recovered/Not Resolved]
  - Tuberculosis [Not Recovered/Not Resolved]
  - Abdominal pain [Not Recovered/Not Resolved]

NARRATIVE: CASE EVENT DATE: 20210112
